FAERS Safety Report 6849426-7 (Version None)
Quarter: 2010Q3

REPORT INFORMATION
  Report Type: 
  Country: None (occurrence: None)
  Receive Date: 20100716
  Receipt Date: 20070928
  Transmission Date: 20110219
  Serious: No
  Sender: FDA-Public Use
  Company Number: US-PFIZER INC-2007082941

PATIENT
  Sex: Female
  Weight: 77.2 kg

DRUGS (9)
  1. CHANTIX [Suspect]
     Indication: SMOKING CESSATION THERAPY
     Dates: start: 20070924
  2. SYNTHROID [Concomitant]
     Indication: HYPOTHYROIDISM
  3. PAXIL [Concomitant]
  4. TOPROL-XL [Concomitant]
  5. ALLEGRA [Concomitant]
  6. VYTORIN [Concomitant]
  7. ACETYLSALICYLIC ACID [Concomitant]
  8. FOSAMAX [Concomitant]
  9. MULTI-VITAMINS [Concomitant]

REACTIONS (1)
  - RASH [None]
